FAERS Safety Report 5599671-6 (Version None)
Quarter: 2008Q1

REPORT INFORMATION
  Report Type: 
  Country: None (occurrence: None)
  Receive Date: 20080123
  Receipt Date: 20080114
  Transmission Date: 20080703
  Serious: Yes (Hospitalization)
  Sender: FDA-Public Use
  Company Number: FR-BRISTOL-MYERS SQUIBB COMPANY-14045678

PATIENT
  Age: 41 Year
  Sex: Male

DRUGS (8)
  1. ENDOXAN [Suspect]
     Indication: GLOMERULONEPHRITIS
     Route: 042
     Dates: start: 20070710, end: 20071102
  2. IMUREL [Suspect]
     Indication: GLOMERULONEPHRITIS
     Route: 048
     Dates: start: 20071102, end: 20071111
  3. CORTANCYL [Suspect]
     Dates: start: 20070710, end: 20071102
  4. METHYLPREDNISOLONE [Concomitant]
     Dates: start: 20070710, end: 20071102
  5. DIFFU-K [Concomitant]
  6. CACIT D3 [Concomitant]
  7. DI-ANTALVIC [Concomitant]
  8. LEVOTHYROX [Concomitant]

REACTIONS (4)
  - ACUTE GENERALISED EXANTHEMATOUS PUSTULOSIS [None]
  - INFLAMMATION [None]
  - INFLUENZA LIKE ILLNESS [None]
  - LIVER DISORDER [None]
